FAERS Safety Report 18366841 (Version 4)
Quarter: 2021Q3

REPORT INFORMATION
  Report Type: Report from Study
  Country: CA (occurrence: CA)
  Receive Date: 20201009
  Receipt Date: 20210929
  Transmission Date: 20211014
  Serious: Yes (Other)
  Sender: FDA-Public Use
  Company Number: CA-JNJFOC-20200907982

PATIENT
  Age: 78 Year
  Sex: Female
  Weight: 61.7 kg

DRUGS (2)
  1. STELARA [Suspect]
     Active Substance: USTEKINUMAB
     Indication: CROHN^S DISEASE
     Route: 058
     Dates: start: 20190530
  2. STELARA [Suspect]
     Active Substance: USTEKINUMAB
     Dosage: THE PATIENT RECEIVED 10TH 90 MG STELARA DOSE ON 20/OCT/2020.
     Route: 058

REACTIONS (6)
  - Off label use [Unknown]
  - Product use issue [Unknown]
  - Crohn^s disease [Unknown]
  - Animal scratch [Unknown]
  - Localised infection [Recovering/Resolving]
  - Pain [Unknown]

NARRATIVE: CASE EVENT DATE: 20200829
